FAERS Safety Report 4283617-7 (Version None)
Quarter: 2004Q1

REPORT INFORMATION
  Report Type: 
  Country: None (occurrence: None)
  Receive Date: 20040129
  Receipt Date: 20040129
  Transmission Date: 20041129
  Serious: Yes (Hospitalization)
  Sender: FDA-Public Use
  Company Number: None

PATIENT
  Sex: Male
  Weight: 100 kg

DRUGS (9)
  1. CYCLOPHOSPHAMIDE [Suspect]
     Indication: LYMPHOMA
     Dosage: 1430 MG X 1 IV
     Route: 042
     Dates: start: 20031230
  2. CYCLOPHOSPHAMIDE [Suspect]
     Indication: LYMPHOMA
     Dosage: 1430 MG X 1 IV
     Route: 042
     Dates: start: 20040106
  3. CYCLOPHOSPHAMIDE [Suspect]
     Route: 042
  4. DOXORUBICIN HCL [Suspect]
     Dosage: 55 MG X 1 IV
     Route: 042
     Dates: start: 20031230
  5. DOXORUBICIN HCL [Suspect]
     Dosage: 55 MG X 1 IV
     Route: 042
     Dates: start: 20040106
  6. ETOPOSIDE [Suspect]
     Dosage: 264MG X1 IV
     Route: 042
     Dates: start: 20031230
  7. ETOPOSIDE [Suspect]
     Dosage: 264MG X1 IV
     Route: 042
     Dates: start: 20040106
  8. PREDNISONE [Concomitant]
  9. COTRIMOSAZOLE [Concomitant]

REACTIONS (5)
  - CHILLS [None]
  - FATIGUE [None]
  - PAIN [None]
  - PYREXIA [None]
  - SINUSITIS [None]
